FAERS Safety Report 18395462 (Version 3)
Quarter: 2020Q4

REPORT INFORMATION
  Report Type: Report from Study
  Country: US (occurrence: US)
  Receive Date: 20201017
  Receipt Date: 20201207
  Transmission Date: 20210114
  Serious: No
  Sender: FDA-Public Use
  Company Number: NVSC2020US275972

PATIENT
  Sex: Female

DRUGS (1)
  1. ZARXIO [Suspect]
     Active Substance: FILGRASTIM-SNDZ
     Indication: PRODUCT USED FOR UNKNOWN INDICATION
     Dosage: 1 DF, UNKNOWN (1 SYRINGE)
     Route: 065

REACTIONS (4)
  - Emotional distress [Unknown]
  - Frustration tolerance decreased [Unknown]
  - Confusional state [Unknown]
  - Product availability issue [Unknown]
